FAERS Safety Report 6767734-5 (Version None)
Quarter: 2010Q2

REPORT INFORMATION
  Report Type: 
  Country: None (occurrence: None)
  Receive Date: 20100614
  Receipt Date: 20100604
  Transmission Date: 20101027
  Serious: Yes (Death, Hospitalization)
  Sender: FDA-Public Use
  Company Number: CO-ROCHE-707458

PATIENT
  Sex: Male

DRUGS (1)
  1. XELODA [Suspect]
     Dosage: FREQUENCY: QD
     Route: 048
     Dates: start: 20100202, end: 20100503

REACTIONS (1)
  - MALIGNANT NEOPLASM PROGRESSION [None]
